FAERS Safety Report 9934524 (Version 2)
Quarter: 2014Q1

REPORT INFORMATION
  Report Type: Spontaneous
  Country: US (occurrence: US)
  Receive Date: 20140228
  Receipt Date: 20140228
  Transmission Date: 20141002
  Serious: No
  Sender: FDA-Public Use
  Company Number: US-ASTRAZENECA-2007UW00907

PATIENT
  Age: 51 Year
  Sex: Female
  Weight: 76.2 kg

DRUGS (4)
  1. TOPROL XL [Suspect]
     Indication: BLOOD PRESSURE ABNORMAL
     Route: 048
  2. ANALAPRIL [Concomitant]
     Indication: BLOOD PRESSURE ABNORMAL
  3. XANAX [Concomitant]
     Indication: STRESS
  4. XANAX [Concomitant]
     Indication: ANXIETY

REACTIONS (3)
  - Alopecia [Unknown]
  - Alopecia [Not Recovered/Not Resolved]
  - Drug effect decreased [Recovered/Resolved]
